FAERS Safety Report 9168050 (Version 1)
Quarter: 2013Q1

REPORT INFORMATION
  Report Type: Spontaneous
  Country: US (occurrence: US)
  Receive Date: 20130318
  Receipt Date: 20130318
  Transmission Date: 20140127
  Serious: No
  Sender: FDA-Public Use
  Company Number: US-PFIZER INC-2013087879

PATIENT
  Age: 70 Year
  Sex: Female
  Weight: 55.78 kg

DRUGS (1)
  1. CELEBREX [Suspect]
     Indication: PROCEDURAL PAIN
     Dosage: 200 MG, 2X/DAY
     Route: 048
     Dates: start: 20130307, end: 20130308

REACTIONS (1)
  - Abdominal pain upper [Unknown]
